FAERS Safety Report 12423809 (Version 1)
Quarter: 2016Q2

REPORT INFORMATION
  Report Type: Spontaneous
  Country: FR (occurrence: FR)
  Receive Date: 20160601
  Receipt Date: 20160601
  Transmission Date: 20160815
  Serious: Yes (Other)
  Sender: FDA-Public Use
  Company Number: FR-PFIZER INC-2016282269

PATIENT
  Age: 67 Year
  Sex: Female

DRUGS (1)
  1. ORELOX [Suspect]
     Active Substance: CEFPODOXIME
     Indication: INFECTION
     Dosage: UNK
     Route: 048
     Dates: start: 20160523, end: 20160524

REACTIONS (2)
  - Inflammation [Unknown]
  - Dermatitis bullous [Unknown]

NARRATIVE: CASE EVENT DATE: 20160524
